FAERS Safety Report 4292513-0 (Version None)
Quarter: 2004Q1

REPORT INFORMATION
  Report Type: 
  Country: None (occurrence: None)
  Receive Date: 20040211
  Receipt Date: 20040211
  Transmission Date: 20041129
  Serious: Yes (Hospitalization)
  Sender: FDA-Public Use
  Company Number: None

PATIENT
  Sex: Female
  Weight: 59.8748 kg

DRUGS (8)
  1. CAFERGOT [Suspect]
     Indication: HEADACHE
     Dosage: 2 MG AT ONSET ORAL
     Route: 048
     Dates: start: 20040114, end: 20040115
  2. ATENOLOL [Concomitant]
  3. CLONIDINE [Concomitant]
  4. FLUOXETINE [Concomitant]
  5. TRAZODONE HCL [Concomitant]
  6. FUROSEMIDE [Concomitant]
  7. SIMVASTATIN [Concomitant]
  8. PERCOGESIC [Concomitant]

REACTIONS (5)
  - HEADACHE [None]
  - HYPERTENSION [None]
  - NAUSEA [None]
  - TACHYCARDIA [None]
  - VOMITING [None]
